FAERS Safety Report 5218490-3 (Version None)
Quarter: 2006Q4

REPORT INFORMATION
  Report Type: 
  Country: None (occurrence: None)
  Receive Date: 20061121
  Receipt Date: 20060929
  Transmission Date: 20070319
  Serious: No
  Sender: FDA-Public Use
  Company Number: TPA2006A01698

PATIENT
  Age: 41 Year
  Sex: Female
  Weight: 51.2565 kg

DRUGS (2)
  1. ROZEREM [Suspect]
     Indication: INSOMNIA
     Dosage: 8 MG, HS AS REQUIRED, PER ORAL
     Route: 048
     Dates: start: 20060601
  2. CELEXA [Concomitant]

REACTIONS (5)
  - DISTURBANCE IN ATTENTION [None]
  - LETHARGY [None]
  - MEMORY IMPAIRMENT [None]
  - PHOBIA OF DRIVING [None]
  - SOMNOLENCE [None]
